FAERS Safety Report 11849270 (Version 1)
Quarter: 2015Q4

REPORT INFORMATION
  Report Type: Spontaneous
  Country: US (occurrence: None)
  Receive Date: 20151217
  Receipt Date: 20151217
  Transmission Date: 20160305
  Serious: Yes (Life-Threatening)
  Sender: FDA-Public Use
  Company Number: None

PATIENT
  Age: 69 Year
  Sex: Female
  Weight: 109.77 kg

DRUGS (10)
  1. PRAVASTATIN [Concomitant]
     Active Substance: PRAVASTATIN\PRAVASTATIN SODIUM
  2. ACTEMRA [Suspect]
     Active Substance: TOCILIZUMAB
     Indication: RHEUMATOID ARTHRITIS
     Dosage: Q4W
     Route: 042
     Dates: start: 20151001, end: 20151214
  3. TRAMADOL. [Concomitant]
     Active Substance: TRAMADOL
  4. ASCORBIC ACID. [Concomitant]
     Active Substance: ASCORBIC ACID
  5. ARAVA [Concomitant]
     Active Substance: LEFLUNOMIDE
  6. LOSARTAN. [Concomitant]
     Active Substance: LOSARTAN
  7. TRIAMTERENE/HYDROCHLOROTHIAZIDE [Concomitant]
     Active Substance: HYDROCHLOROTHIAZIDE\TRIAMTERENE
  8. ESTRADIOL. [Concomitant]
     Active Substance: ESTRADIOL
  9. ACTEMRA [Suspect]
     Active Substance: TOCILIZUMAB
     Indication: RHEUMATOID ARTHRITIS
     Dosage: Q4W
     Route: 042
     Dates: start: 20151001, end: 20151214
  10. ASPIRIN. [Concomitant]
     Active Substance: ASPIRIN

REACTIONS (4)
  - Hyperhidrosis [None]
  - Heart rate increased [None]
  - Dyspnoea [None]
  - Blood pressure decreased [None]

NARRATIVE: CASE EVENT DATE: 20151214
